FAERS Safety Report 22104743 (Version 1)
Quarter: 2023Q1

REPORT INFORMATION
  Report Type: Spontaneous
  Country: US (occurrence: US)
  Receive Date: 20230316
  Receipt Date: 20230316
  Transmission Date: 20230417
  Serious: No
  Sender: FDA-Public Use
  Company Number: US-SANOFI-01525456

PATIENT
  Age: 70 Year
  Sex: Female

DRUGS (1)
  1. ELITEK [Suspect]
     Active Substance: RASBURICASE
     Indication: Blood uric acid abnormal
     Dosage: 6 MG, 1X
     Route: 065
     Dates: start: 20230309, end: 20230309

REACTIONS (2)
  - Blood uric acid increased [Unknown]
  - Product temperature excursion issue [Unknown]
